FAERS Safety Report 4404136-0 (Version None)
Quarter: 2004Q3

REPORT INFORMATION
  Report Type: 
  Country: None (occurrence: None)
  Receive Date: 20040721
  Receipt Date: 20040721
  Transmission Date: 20050211
  Serious: Yes (Hospitalization)
  Sender: FDA-Public Use
  Company Number: None

PATIENT
  Sex: Male
  Weight: 83.9154 kg

DRUGS (4)
  1. DOCETAXEL [Suspect]
     Indication: NON-SMALL CELL LUNG CANCER
     Dosage: 157.5 MG X 1 INTRAVENOUS
     Route: 042
     Dates: start: 20040623, end: 20040623
  2. CARBOPLATIN [Suspect]
     Dosage: 531 MG X 1 INTRAVENOUS
     Route: 042
     Dates: start: 20040623, end: 20040623
  3. ALLOPURINOL [Concomitant]
  4. ATENOLOL [Concomitant]

REACTIONS (5)
  - DEHYDRATION [None]
  - HAEMOGLOBIN DECREASED [None]
  - PLATELET COUNT DECREASED [None]
  - PYREXIA [None]
  - WHITE BLOOD CELL COUNT DECREASED [None]
